FAERS Safety Report 22329695 (Version 1)
Quarter: 2023Q2

REPORT INFORMATION
  Report Type: Other
  Country: US (occurrence: None)
  Receive Date: 20230517
  Receipt Date: 20230517
  Transmission Date: 20230722
  Serious: No
  Sender: FDA-Public Use
  Company Number: US-ROCHE-3276608

PATIENT
  Age: 55 Year
  Sex: Female

DRUGS (14)
  1. TOCILIZUMAB [Suspect]
     Active Substance: TOCILIZUMAB
     Indication: COVID-19 pneumonia
     Dosage: ONE 600 MG DOSE
     Route: 065
  2. ROSUVASTATIN [Concomitant]
     Active Substance: ROSUVASTATIN
  3. LISINOPRIL [Concomitant]
     Active Substance: LISINOPRIL
  4. PIOGLITAZONE [Concomitant]
     Active Substance: PIOGLITAZONE
  5. GLIPIZIDE [Concomitant]
     Active Substance: GLIPIZIDE
  6. METFORMIN [Concomitant]
     Active Substance: METFORMIN HYDROCHLORIDE
  7. EMPAGLIFLOZIN [Concomitant]
     Active Substance: EMPAGLIFLOZIN
  8. REMDESIVIR [Concomitant]
     Active Substance: REMDESIVIR
     Indication: COVID-19 pneumonia
  9. METHYLPREDNISOLONE [Concomitant]
     Active Substance: METHYLPREDNISOLONE
     Indication: COVID-19 pneumonia
  10. METHYLPREDNISOLONE [Concomitant]
     Active Substance: METHYLPREDNISOLONE
  11. CEFTRIAXONE [Concomitant]
     Active Substance: CEFTRIAXONE
     Indication: Pneumonia bacterial
  12. DOXYCYCLINE [Concomitant]
     Active Substance: DOXYCYCLINE
     Indication: Pneumonia bacterial
  13. ENOXAPARIN [Concomitant]
     Active Substance: ENOXAPARIN
     Indication: Thrombosis prophylaxis
  14. PREDNISONE [Concomitant]
     Active Substance: PREDNISONE

REACTIONS (2)
  - Off label use [Unknown]
  - No adverse event [Unknown]
